FAERS Safety Report 8777740 (Version 1)
Quarter: 2012Q4

REPORT INFORMATION
  Report Type: 
  Country: US (occurrence: US)
  Receive Date: 20120911
  Receipt Date: 20120911
  Transmission Date: 20130627
  Serious: Yes (Hospitalization, Other)
  Sender: FDA-Public Use
  Company Number: US-ASTRAZENECA-2012SE65151

PATIENT
  Age: 67 Year
  Sex: Female
  Weight: 80.7 kg

DRUGS (20)
  1. PRILOSEC [Suspect]
     Indication: GASTROOESOPHAGEAL REFLUX DISEASE
     Route: 048
     Dates: start: 20060808, end: 20120719
  2. CELEXA [Interacting]
     Indication: DEPRESSION
     Route: 048
     Dates: start: 20070105
  3. RILONACEPT [Suspect]
     Indication: GOUT
     Route: 058
     Dates: start: 20120315, end: 20120705
  4. RILONACEPT [Suspect]
     Indication: GOUT
     Route: 058
     Dates: start: 20120813
  5. PLACEBO [Suspect]
     Route: 058
     Dates: start: 20120315, end: 20120705
  6. PLACEBO [Suspect]
     Route: 058
  7. PROTONIX [Concomitant]
     Route: 048
     Dates: start: 20120725
  8. ALLOPURINOL [Concomitant]
     Indication: GOUT
     Route: 048
     Dates: start: 20120315, end: 20120403
  9. ALLOPURINOL [Concomitant]
     Indication: GOUT
     Route: 048
     Dates: start: 20120404, end: 20120416
  10. ALLOPURINOL [Concomitant]
     Indication: GOUT
     Route: 048
     Dates: start: 20120417, end: 20120430
  11. ALLOPURINOL [Concomitant]
     Indication: GOUT
     Route: 048
     Dates: start: 20120501, end: 20120710
  12. ARMOUR THYROID [Concomitant]
     Indication: THYROID HORMONE REPLACEMENT THERAPY
     Route: 048
     Dates: start: 197201
  13. TOPROL XL [Concomitant]
     Indication: HYPERTENSION
     Route: 048
     Dates: start: 199601
  14. HYDROCHLOROTHIAZIDE [Concomitant]
     Indication: HYPERTENSION
     Route: 048
     Dates: start: 20060808
  15. GABAPENTIN [Concomitant]
     Indication: NEUROPATHY PERIPHERAL
     Route: 048
     Dates: start: 20120214
  16. PREMARIN [Concomitant]
     Indication: HORMONE REPLACEMENT THERAPY
     Route: 048
     Dates: start: 20071205
  17. TYLENOL [Concomitant]
     Indication: ARTHRITIS
     Dates: start: 20090507
  18. CORTISONE [Concomitant]
     Indication: ARTHRALGIA
     Dosage: ONE TIME
     Dates: start: 20120706, end: 20120706
  19. MULTIVITAMINS [Concomitant]
     Indication: ROUTINE HEALTH MAINTENANCE
     Route: 048
     Dates: start: 20070808
  20. ASPIRIN [Concomitant]
     Indication: ROUTINE HEALTH MAINTENANCE
     Route: 048
     Dates: start: 20110112

REACTIONS (9)
  - Drug interaction [Recovered/Resolved]
  - Renal failure chronic [Unknown]
  - Cataract [Unknown]
  - Neuropathy peripheral [Unknown]
  - Back pain [Unknown]
  - Gout [Unknown]
  - Ear infection [Unknown]
  - Sinusitis [Unknown]
  - Seborrhoeic keratosis [Unknown]
